FAERS Safety Report 5499920-9 (Version None)
Quarter: 2007Q4

REPORT INFORMATION
  Report Type: 
  Country: None (occurrence: None)
  Receive Date: 20071026
  Receipt Date: 20071022
  Transmission Date: 20080405
  Serious: Yes (Hospitalization)
  Sender: FDA-Public Use
  Company Number: SE-PFIZER INC-2007087858

PATIENT
  Sex: Male

DRUGS (3)
  1. CABERGOLINE [Suspect]
     Indication: PARKINSON'S DISEASE
     Route: 048
  2. MADOPARK [Concomitant]
     Route: 048
  3. COMTESS [Concomitant]
     Dosage: DAILY DOSE:200MG
     Route: 048

REACTIONS (1)
  - PLEURISY [None]
